FAERS Safety Report 8822445 (Version 1)
Quarter: 2012Q4

REPORT INFORMATION
  Report Type: 
  Country: JP (occurrence: JP)
  Receive Date: 20121003
  Receipt Date: 20121003
  Transmission Date: 20130627
  Serious: Yes (Other)
  Sender: FDA-Public Use
  Company Number: JP-ELI_LILLY_AND_COMPANY-JP201209007580

PATIENT
  Sex: Female

DRUGS (2)
  1. ALIMTA [Suspect]
     Route: 042
  2. FOLIC ACID [Concomitant]
     Route: 048

REACTIONS (1)
  - Intestinal obstruction [Not Recovered/Not Resolved]
